FAERS Safety Report 6200560-4 (Version None)
Quarter: 2009Q2

REPORT INFORMATION
  Report Type: 
  Country: None (occurrence: None)
  Receive Date: 20090522
  Receipt Date: 20090514
  Transmission Date: 20091009
  Serious: Yes (Hospitalization)
  Sender: FDA-Public Use
  Company Number: JP-ABBOTT-09P-087-0574864-00

PATIENT
  Age: 78 Year
  Sex: Male

DRUGS (2)
  1. LEUPLIN SR FOR INJECTION 11.25 MG [Suspect]
     Indication: PROSTATE CANCER STAGE II
     Route: 058
     Dates: start: 20060515
  2. UFT [Suspect]
     Indication: GASTROINTESTINAL CARCINOMA
     Route: 048
     Dates: end: 20060730

REACTIONS (2)
  - HEPATIC FUNCTION ABNORMAL [None]
  - PANCREATIC CARCINOMA [None]
